FAERS Safety Report 19923663 (Version 1)
Quarter: 2021Q4

REPORT INFORMATION
  Report Type: Spontaneous
  Country: CN (occurrence: CN)
  Receive Date: 20211006
  Receipt Date: 20211006
  Transmission Date: 20220303
  Serious: Yes (Other)
  Sender: FDA-Public Use
  Company Number: CN-MLMSERVICE-20210922-3118821-1

PATIENT
  Age: 23 Year
  Sex: Male

DRUGS (5)
  1. METHOTREXATE [Suspect]
     Active Substance: METHOTREXATE
     Indication: Pyoderma gangrenosum
  2. PREDNISONE [Suspect]
     Active Substance: PREDNISONE
     Indication: Pyoderma gangrenosum
  3. CYCLOSPORINE [Suspect]
     Active Substance: CYCLOSPORINE
     Indication: Pyoderma gangrenosum
  4. THALIDOMIDE [Suspect]
     Active Substance: THALIDOMIDE
     Indication: Pyoderma gangrenosum
     Dosage: PER NIGHT
  5. IMMUNOGLOBULINS [Concomitant]
     Indication: Immune system disorder
     Dosage: 20 G PER DAY ONCE FOR 3 DAYS EVERY 3 MONTHS
     Route: 042

REACTIONS (2)
  - Liver injury [Recovering/Resolving]
  - Hepatic function abnormal [Recovering/Resolving]
